FAERS Safety Report 5207203-7 (Version None)
Quarter: 2007Q1

REPORT INFORMATION
  Report Type: 
  Country: None (occurrence: None)
  Receive Date: 20070112
  Receipt Date: 20070109
  Transmission Date: 20070707
  Serious: Yes (Hospitalization, Other)
  Sender: FDA-Public Use
  Company Number: GB-GLAXOSMITHKLINE-B0452428A

PATIENT
  Sex: Male

DRUGS (5)
  1. CEFTAZIDIME [Suspect]
     Indication: PSEUDOMONAS INFECTION
     Dosage: 1G UNKNOWN
     Route: 042
     Dates: start: 20061018, end: 20061020
  2. FLUCLOXACILLIN [Concomitant]
     Route: 065
  3. LACTULOSE [Concomitant]
     Route: 065
  4. LANSOPRAZOLE [Concomitant]
     Route: 065
  5. VENTOLIN [Concomitant]
     Route: 065

REACTIONS (2)
  - NEPHRITIS INTERSTITIAL [None]
  - RASH [None]
